FAERS Safety Report 4999767-3 (Version None)
Quarter: 2006Q2

REPORT INFORMATION
  Report Type: 
  Country: None (occurrence: None)
  Receive Date: 20060511
  Receipt Date: 20060503
  Transmission Date: 20061013
  Serious: Yes (Hospitalization)
  Sender: FDA-Public Use
  Company Number: ES-GLAXOSMITHKLINE-B0423191A

PATIENT
  Age: 74 Year
  Sex: Female

DRUGS (3)
  1. ZOVIRAX [Suspect]
     Indication: ENCEPHALITIS HERPES
     Dosage: 750MG THREE TIMES PER DAY
     Route: 042
     Dates: start: 20060427, end: 20060427
  2. PHENOBARBITAL TAB [Concomitant]
     Indication: DRUG USE FOR UNKNOWN INDICATION
     Route: 065
  3. LEVOTHYROXINE SODIUM [Concomitant]
     Indication: DRUG USE FOR UNKNOWN INDICATION
     Dosage: 175MCG PER DAY
     Route: 065

REACTIONS (1)
  - NEPHROGENIC DIABETES INSIPIDUS [None]
